FAERS Safety Report 6047716-1 (Version None)
Quarter: 2009Q1

REPORT INFORMATION
  Report Type: 
  Country: None (occurrence: None)
  Receive Date: 20090123
  Receipt Date: 20090121
  Transmission Date: 20090719
  Serious: Yes (Other)
  Sender: FDA-Public Use
  Company Number: SA-JNJFOC-20090102928

PATIENT
  Age: 32 Year
  Sex: Female

DRUGS (1)
  1. TOPAMAX [Suspect]
     Indication: COMPLEX PARTIAL SEIZURES

REACTIONS (2)
  - DEAFNESS [None]
  - PARAESTHESIA [None]
